FAERS Safety Report 7478093-7 (Version None)
Quarter: 2011Q2

REPORT INFORMATION
  Report Type: 
  Country: None (occurrence: None)
  Receive Date: 20110511
  Receipt Date: 20110511
  Transmission Date: 20111010
  Serious: Yes (Hospitalization, Other)
  Sender: FDA-Public Use
  Company Number: None

PATIENT
  Age: 24 Year
  Sex: Male

DRUGS (2)
  1. DIVALPROEX EXTENDED-RELEASE [Suspect]
     Indication: BIPOLAR DISORDER
     Dosage: 1000MG DAILY PO
     Route: 048
     Dates: start: 20110214, end: 20110222
  2. RISPERIDONE [Suspect]
     Indication: BIPOLAR DISORDER
     Dosage: 2MG DAILY PO
     Route: 048
     Dates: start: 20110227, end: 20110301

REACTIONS (3)
  - DRUG LEVEL INCREASED [None]
  - THROMBOCYTOPENIA [None]
  - NEUTROPHIL COUNT DECREASED [None]
